FAERS Safety Report 4300453-3 (Version None)
Quarter: 2004Q1

REPORT INFORMATION
  Report Type: 
  Country: None (occurrence: None)
  Receive Date: 20040217
  Receipt Date: 20040130
  Transmission Date: 20041129
  Serious: Yes (Hospitalization)
  Sender: FDA-Public Use
  Company Number: 2004IC000029

PATIENT
  Age: 55 Year
  Sex: Female

DRUGS (12)
  1. FLUOROURACIL [Suspect]
     Indication: BREAST CANCER
     Dosage: 900 MG; INTRAVENOUS DRIP; 450 MG; INTRAVENOUS DRIP
     Route: 041
     Dates: start: 20030218, end: 20030715
  2. FLUOROURACIL [Suspect]
     Indication: BREAST CANCER
     Dosage: 900 MG; INTRAVENOUS DRIP; 450 MG; INTRAVENOUS DRIP
     Route: 041
     Dates: start: 20030722, end: 20030722
  3. METHOTREXATE [Suspect]
     Indication: BREAST CANCER
     Dosage: 60 MG; INTRAVENOUS DRIP; 30 MG; INTRAVENOUS DRIP
     Route: 041
     Dates: start: 20030218, end: 20030715
  4. METHOTREXATE [Suspect]
     Indication: BREAST CANCER
     Dosage: 60 MG; INTRAVENOUS DRIP; 30 MG; INTRAVENOUS DRIP
     Route: 041
     Dates: start: 20030722, end: 20030722
  5. CYCLOPHOSPHAMIDE [Suspect]
     Indication: BREAST CANCER
     Dosage: 150 MG; ORAL; 75MG; ORAL
     Route: 048
     Dates: start: 20030218, end: 20030715
  6. CYCLOPHOSPHAMIDE [Suspect]
     Indication: BREAST CANCER
     Dosage: 150 MG; ORAL; 75MG; ORAL
     Route: 048
     Dates: start: 20030722, end: 20030722
  7. URSO [Concomitant]
  8. DOMPERIDONE [Concomitant]
  9. ACINON [Concomitant]
  10. IRSOGLADINE MALEATE [Concomitant]
  11. GASTROM [Concomitant]
  12. NORVASC [Concomitant]

REACTIONS (5)
  - BLOOD GLUCOSE INCREASED [None]
  - CONDITION AGGRAVATED [None]
  - GLUCOSE TOLERANCE IMPAIRED [None]
  - GLYCOSYLATED HAEMOGLOBIN INCREASED [None]
  - HEPATIC FUNCTION ABNORMAL [None]
